FAERS Safety Report 4340436-0 (Version None)
Quarter: 2004Q2

REPORT INFORMATION
  Report Type: 
  Country: None (occurrence: None)
  Receive Date: 20040414
  Receipt Date: 20040401
  Transmission Date: 20050107
  Serious: Yes (Hospitalization)
  Sender: FDA-Public Use
  Company Number: F01200400591

PATIENT
  Age: 68 Year
  Sex: Male

DRUGS (17)
  1. OXALIPLATIN [Suspect]
     Indication: COLORECTAL CANCER
     Dosage: 85 MG/M2 Q2W
     Route: 042
     Dates: start: 20040318, end: 20040318
  2. FLUOROURACIL [Suspect]
     Dosage: 400 MG/M2 BOLUS THEN 2400 MG/M2 AS 46 HOURS INFUSION Q2W
     Route: 042
     Dates: start: 20040318, end: 20040318
  3. LEUCOVORIN CALCIUM [Suspect]
     Dosage: 350 MG Q2W
     Route: 042
     Dates: start: 20040318, end: 20040318
  4. AVASTIN [Suspect]
     Dosage: 5 MG/KG OVER 30-90 MINUTES IV INFUSION ON DAY 1, Q2W
     Route: 042
     Dates: start: 20040318, end: 20040318
  5. SULAR [Concomitant]
  6. POTASSIUM CHLORIDE [Concomitant]
  7. MAGNESIUM SULFATE [Concomitant]
  8. ONDANSETRON HCL [Concomitant]
  9. DEXAMETHASONE [Concomitant]
  10. DARBEPOETIN ALFA [Concomitant]
  11. ESCITALOPRAM OXALATE (CITALOPRAM) [Concomitant]
  12. LOPERAMIDE HYDROCHLORIDE [Concomitant]
  13. DIPHENOXYLATE (DIPHENOXYLATE+ATROPINE SULFATE) [Concomitant]
  14. PROPOXA [Concomitant]
  15. ALPRAZOLAM [Concomitant]
  16. ZOLPIDEM [Concomitant]
  17. LASIX [Concomitant]

REACTIONS (15)
  - ALANINE AMINOTRANSFERASE DECREASED [None]
  - AORTIC STENOSIS [None]
  - AORTIC VALVE INCOMPETENCE [None]
  - BLOOD ALBUMIN DECREASED [None]
  - BLOOD CALCIUM DECREASED [None]
  - BLOOD POTASSIUM DECREASED [None]
  - BLOOD SODIUM DECREASED [None]
  - CARDIAC FAILURE CONGESTIVE [None]
  - FIBRIN D DIMER INCREASED [None]
  - MITRAL VALVE INCOMPETENCE [None]
  - NEUTROPHIL COUNT DECREASED [None]
  - PULMONARY HYPERTENSION [None]
  - PULMONARY OEDEMA [None]
  - TRICUSPID VALVE INCOMPETENCE [None]
  - WHITE BLOOD CELL COUNT DECREASED [None]
